FAERS Safety Report 4917704-4 (Version None)
Quarter: 2006Q1

REPORT INFORMATION
  Report Type: 
  Country: None (occurrence: None)
  Receive Date: 20060221
  Receipt Date: 20050829
  Transmission Date: 20060701
  Serious: Yes (Hospitalization, Disabling)
  Sender: FDA-Public Use
  Company Number: US-ROCHE-416079

PATIENT
  Age: 22 Year
  Sex: Male
  Weight: 59 kg

DRUGS (1)
  1. ACCUTANE [Suspect]
     Dosage: 1 DOSE FORM IN A.M AND TWO DOSE FORMS IN P.M.
     Route: 048
     Dates: start: 19970709

REACTIONS (48)
  - ABDOMINAL PAIN [None]
  - ABSCESS INTESTINAL [None]
  - ANAEMIA [None]
  - ANGIOPATHY [None]
  - ARTHRITIS [None]
  - ASTHENIA [None]
  - BACK PAIN [None]
  - CHRONIC FATIGUE SYNDROME [None]
  - CROHN'S DISEASE [None]
  - DEHYDRATION [None]
  - DIARRHOEA [None]
  - DIZZINESS [None]
  - DUODENITIS [None]
  - DYSPEPSIA [None]
  - ENTERITIS [None]
  - ERYTHEMA [None]
  - FAECES DISCOLOURED [None]
  - GASTRITIS [None]
  - GASTROENTERITIS [None]
  - GASTROINTESTINAL DISORDER [None]
  - HAEMATOCHEZIA [None]
  - HEADACHE [None]
  - HEAT STROKE [None]
  - HYPERAEMIA [None]
  - HYPERPLASIA [None]
  - HYPERSENSITIVITY [None]
  - INFLAMMATORY BOWEL DISEASE [None]
  - INFLUENZA LIKE ILLNESS [None]
  - INJURY [None]
  - INSOMNIA [None]
  - INTESTINAL HAEMORRHAGE [None]
  - LYMPHOCYTOSIS [None]
  - MUCOUS MEMBRANE DISORDER [None]
  - MULTI-ORGAN DISORDER [None]
  - NAUSEA [None]
  - NECK INJURY [None]
  - OEDEMA [None]
  - OESOPHAGITIS [None]
  - POSTNASAL DRIP [None]
  - PRURITUS [None]
  - PSEUDOPOLYP [None]
  - RECTAL HAEMORRHAGE [None]
  - RHINITIS [None]
  - SOMNOLENCE [None]
  - TONSILLAR HYPERTROPHY [None]
  - UPPER RESPIRATORY TRACT INFECTION [None]
  - VOMITING [None]
  - WEIGHT DECREASED [None]
